FAERS Safety Report 21612647 (Version 2)
Quarter: 2022Q4

REPORT INFORMATION
  Report Type: Spontaneous
  Country: US (occurrence: US)
  Receive Date: 20221118
  Receipt Date: 20221125
  Transmission Date: 20230113
  Serious: No
  Sender: FDA-Public Use
  Company Number: US-AIMMUNE THERAPEUTICS, INC.-2022AIMT02725

PATIENT

DRUGS (3)
  1. PALFORZIA [Suspect]
     Active Substance: PEANUT
     Indication: Food allergy
     Dosage: IDE (0.5MG-6MG), ONCE
     Route: 048
     Dates: start: 20220907, end: 20220907
  2. PALFORZIA [Suspect]
     Active Substance: PEANUT
     Dosage: 40 MG, 1X/DAY
     Route: 048
     Dates: start: 20221103
  3. PALFORZIA [Suspect]
     Active Substance: PEANUT
     Dosage: 40 MG, ONCE, LAST DOSE PRIOR TO EVENT ONSET
     Route: 048
     Dates: start: 20221107, end: 20221107

REACTIONS (1)
  - Urticaria [Recovered/Resolved]

NARRATIVE: CASE EVENT DATE: 20221107
